FAERS Safety Report 12641430 (Version 2)
Quarter: 2016Q3

REPORT INFORMATION
  Report Type: Spontaneous
  Country: BR (occurrence: BR)
  Receive Date: 20160810
  Receipt Date: 20160826
  Transmission Date: 20161109
  Serious: Yes (Other)
  Sender: FDA-Public Use
  Company Number: BR-SA-2016SA145003

PATIENT
  Age: 4 Month
  Sex: Male
  Weight: 3.3 kg

DRUGS (4)
  1. LANTUS [Suspect]
     Active Substance: INSULIN GLARGINE
     Indication: FOETAL EXPOSURE DURING PREGNANCY
     Route: 063
  2. LANTUS [Suspect]
     Active Substance: INSULIN GLARGINE
     Indication: FOETAL EXPOSURE DURING PREGNANCY
     Dosage: TRAN
     Route: 064
  3. LANTUS [Suspect]
     Active Substance: INSULIN GLARGINE
     Indication: EXPOSURE DURING BREAST FEEDING
     Route: 063
  4. LANTUS [Suspect]
     Active Substance: INSULIN GLARGINE
     Indication: EXPOSURE DURING BREAST FEEDING
     Dosage: TRAN
     Route: 064

REACTIONS (5)
  - Malaise [Unknown]
  - Exposure during breast feeding [Unknown]
  - Arrhythmia neonatal [Unknown]
  - Premature baby [Unknown]
  - Foetal exposure during pregnancy [Unknown]
